FAERS Safety Report 24050122 (Version 1)
Quarter: 2024Q3

REPORT INFORMATION
  Report Type: Spontaneous
  Country: PL (occurrence: PL)
  Receive Date: 20240704
  Receipt Date: 20240704
  Transmission Date: 20241016
  Serious: Yes (Life-Threatening, Other)
  Sender: ASTELLAS
  Company Number: PL-ASTELLAS-2024US018474

PATIENT
  Sex: Male

DRUGS (2)
  1. PADCEV [Suspect]
     Active Substance: ENFORTUMAB VEDOTIN-EJFV
     Indication: Product used for unknown indication
     Dosage: 1.25 MG/KG, CYCLIC (FULL DOSE OF 1.25 MG/KG BODY WEIGHT)
     Route: 065
     Dates: start: 202405, end: 202406
  2. PADCEV [Suspect]
     Active Substance: ENFORTUMAB VEDOTIN-EJFV
     Dosage: UNK UNK, CYCLIC (DOSE WAS REDUCED)
     Route: 065
     Dates: start: 202406, end: 20240627

REACTIONS (4)
  - Pulmonary embolism [Unknown]
  - Fibrin D dimer increased [Unknown]
  - Intertrigo [Recovered/Resolved]
  - Weight decreased [Unknown]

NARRATIVE: CASE EVENT DATE: 20240501
